FAERS Safety Report 21873491 (Version 4)
Quarter: 2023Q2

REPORT INFORMATION
  Report Type: Other
  Country: CA (occurrence: None)
  Receive Date: 20230117
  Receipt Date: 20230419
  Transmission Date: 20230721
  Serious: Yes (Other)
  Sender: FDA-Public Use
  Company Number: CA-ROCHE-3198117

PATIENT
  Sex: Female

DRUGS (18)
  1. ACTEMRA [Suspect]
     Active Substance: TOCILIZUMAB
     Indication: Giant cell arteritis
     Route: 058
     Dates: start: 20210222
  2. CEFUROXIME [Suspect]
     Active Substance: CEFUROXIME
     Indication: Malaise
     Route: 065
     Dates: start: 20230305, end: 20230305
  3. AMLODIPINE [Concomitant]
     Active Substance: AMLODIPINE BESYLATE
  4. BRICANYL [Concomitant]
     Active Substance: TERBUTALINE SULFATE
  5. CALCIUM [Concomitant]
     Active Substance: CALCIUM
  6. FOSAMAX [Concomitant]
     Active Substance: ALENDRONATE SODIUM
  7. MACROBID [Concomitant]
     Active Substance: NITROFURANTOIN\NITROFURANTOIN MONOHYDRATE
     Indication: Urinary tract infection
  8. MAGNESIUM [Concomitant]
     Active Substance: MAGNESIUM
  9. POTASSIUM [Concomitant]
     Active Substance: POTASSIUM
  10. PREDNISONE [Concomitant]
     Active Substance: PREDNISONE
     Dosage: TO INCREASE TO 8MG, 20 MG X3 DAYS, THEN, 15MG X3 DAYS, THEN, 12 MG X3 DAYS, THEN BACK TO 9 MG FOR 2
     Route: 065
     Dates: start: 2022
  11. PREDNISONE [Concomitant]
     Active Substance: PREDNISONE
     Route: 065
  12. PREDNISONE [Concomitant]
     Active Substance: PREDNISONE
     Dosage: INCREASE FROM THE 13 MG TO 40 MG FOR 5 DAYS AND THEN TAPER TO 13 MG AGAIN-TO CONTINUE THE TAPER 1 MG
     Dates: start: 202303
  13. RABEPRAZOLE [Concomitant]
     Active Substance: RABEPRAZOLE
  14. CETIRIZINE HYDROCHLORIDE [Concomitant]
     Active Substance: CETIRIZINE HYDROCHLORIDE
  15. SPIRONOLACTONE [Concomitant]
     Active Substance: SPIRONOLACTONE
  16. ZENHALE [Concomitant]
     Active Substance: FORMOTEROL FUMARATE\MOMETASONE FUROATE
  17. AZITHROMYCIN [Concomitant]
     Active Substance: AZITHROMYCIN
     Indication: Malaise
  18. CORTEF [Concomitant]
     Active Substance: HYDROCORTISONE

REACTIONS (19)
  - White blood cell count increased [Unknown]
  - C-reactive protein increased [Unknown]
  - Pneumonia [Recovering/Resolving]
  - Product storage error [Unknown]
  - Ear pain [Unknown]
  - Glossodynia [Unknown]
  - Malaise [Unknown]
  - Bacterial infection [Unknown]
  - Off label use [Unknown]
  - Viral infection [Unknown]
  - Head discomfort [Unknown]
  - Dizziness [Unknown]
  - Influenza [Unknown]
  - Gastrooesophageal reflux disease [Unknown]
  - Lyme disease [Unknown]
  - Dyspnoea [Unknown]
  - Palpitations [Unknown]
  - Throat irritation [Unknown]
  - Oral pruritus [Unknown]

NARRATIVE: CASE EVENT DATE: 20220101
